FAERS Safety Report 17900904 (Version 3)
Quarter: 2020Q4

REPORT INFORMATION
  Report Type: Spontaneous
  Country: US (occurrence: US)
  Receive Date: 20200616
  Receipt Date: 20201005
  Transmission Date: 20210113
  Serious: No
  Sender: FDA-Public Use
  Company Number: US-SA-2020SA059326

PATIENT

DRUGS (3)
  1. DUPIXENT [Suspect]
     Active Substance: DUPILUMAB
     Dosage: 300 MG, QOW
     Route: 058
  2. DUPIXENT [Suspect]
     Active Substance: DUPILUMAB
     Indication: PSORIASIS
     Dosage: UNK, 1X
     Route: 058
     Dates: start: 202001, end: 202001
  3. DUPIXENT [Suspect]
     Active Substance: DUPILUMAB
     Indication: DERMATITIS ATOPIC
     Dosage: 300 MG, QOW
     Route: 058
     Dates: start: 201909

REACTIONS (7)
  - Product use in unapproved indication [Unknown]
  - Rash papular [Recovering/Resolving]
  - Device leakage [Unknown]
  - Skin swelling [Recovering/Resolving]
  - Incorrect dose administered by device [Unknown]
  - Pruritus [Recovering/Resolving]
  - Dermatitis atopic [Recovering/Resolving]

NARRATIVE: CASE EVENT DATE: 201909
